FAERS Safety Report 10761594 (Version 1)
Quarter: 2015Q1

REPORT INFORMATION
  Report Type: Spontaneous
  Country: None (occurrence: None)
  Receive Date: 20150203
  Receipt Date: 20150203
  Transmission Date: 20150721
  Serious: No
  Sender: FDA-Public Use
  Company Number: None

PATIENT
  Sex: Female

DRUGS (1)
  1. FLUTICASONE PROPIONATE. [Suspect]
     Active Substance: FLUTICASONE PROPIONATE
     Indication: UPPER RESPIRATORY TRACT INFECTION
     Dosage: INHALE 2 PUFFS BY MOUTH 2/DAY ?TWICE DAILY
     Route: 055
     Dates: start: 20141215, end: 20150102

REACTIONS (2)
  - Anosmia [None]
  - Parosmia [None]

NARRATIVE: CASE EVENT DATE: 20150126
